FAERS Safety Report 11782528 (Version 1)
Quarter: 2015Q4

REPORT INFORMATION
  Report Type: Spontaneous
  Country: FR (occurrence: FR)
  Receive Date: 20151127
  Receipt Date: 20151127
  Transmission Date: 20160305
  Serious: Yes (Hospitalization)
  Sender: FDA-Public Use
  Company Number: FR-ACCORD-035784

PATIENT
  Age: 55 Year
  Sex: Male

DRUGS (1)
  1. IRINOTECAN ACCORD [Suspect]
     Active Substance: IRINOTECAN
     Indication: PANCREATIC CARCINOMA
     Dosage: 300 MG 1 IN 1 SINGLE DOSE?STRENGTH: 20 MG/ML
     Route: 042
     Dates: start: 20151021, end: 20151021

REACTIONS (6)
  - Cyanosis [Recovered/Resolved]
  - Hyperthermia [Recovered/Resolved]
  - Feeling abnormal [Recovered/Resolved]
  - Vertigo [Recovered/Resolved]
  - Chills [Recovered/Resolved]
  - Haemoptysis [Recovered/Resolved]

NARRATIVE: CASE EVENT DATE: 20151021
